FAERS Safety Report 10017360 (Version 1)
Quarter: 2014Q1

REPORT INFORMATION
  Report Type: Spontaneous
  Country: US (occurrence: None)
  Receive Date: 20140313
  Receipt Date: 20140313
  Transmission Date: 20141002
  Serious: Yes (Life-Threatening)
  Sender: FDA-Public Use
  Company Number: None

PATIENT
  Age: 56 Year
  Sex: Female
  Weight: 64.86 kg

DRUGS (1)
  1. EFFEXOR/VENLAFAXINE 150 MG WOCKHARDT, USA, LLC 10 OTHER ALSO [Suspect]
     Dosage: 150 MG AT NIGHT  ?ONCE DAILY

REACTIONS (10)
  - Blood glucose decreased [None]
  - Nervousness [None]
  - Confusional state [None]
  - Muscular weakness [None]
  - Hyperhidrosis [None]
  - Memory impairment [None]
  - Vertigo [None]
  - Palpitations [None]
  - Malaise [None]
  - Product quality issue [None]
